FAERS Safety Report 14101319 (Version 1)
Quarter: 2017Q4

REPORT INFORMATION
  Report Type: Spontaneous
  Country: US (occurrence: US)
  Receive Date: 20171018
  Receipt Date: 20171018
  Transmission Date: 20180321
  Serious: Yes (Other)
  Sender: FDA-Public Use
  Company Number: US-AMGEN-USASL2017153205

PATIENT
  Age: 74 Year
  Sex: Male

DRUGS (1)
  1. REPATHA [Suspect]
     Active Substance: EVOLOCUMAB
     Indication: BLOOD CHOLESTEROL INCREASED
     Dosage: 140 MG, Q2WK
     Route: 065

REACTIONS (11)
  - Feeling abnormal [Unknown]
  - Fatigue [Not Recovered/Not Resolved]
  - Injection site pain [Unknown]
  - Eye disorder [Unknown]
  - Weight decreased [Unknown]
  - Musculoskeletal disorder [Unknown]
  - Memory impairment [Unknown]
  - Accidental exposure to product [Unknown]
  - Cough [Unknown]
  - Aphasia [Unknown]
  - Ill-defined disorder [Unknown]
